FAERS Safety Report 20984252 (Version 4)
Quarter: 2022Q4

REPORT INFORMATION
  Report Type: Spontaneous
  Country: FR (occurrence: FR)
  Receive Date: 20220621
  Receipt Date: 20221028
  Transmission Date: 20230112
  Serious: Yes (Death, Other)
  Sender: FDA-Public Use
  Company Number: FR-BRISTOL-MYERS SQUIBB COMPANY-2022-060692

PATIENT
  Age: 63 Year
  Sex: Male
  Weight: 83 kg

DRUGS (2)
  1. NIVOLUMAB [Suspect]
     Active Substance: NIVOLUMAB
     Indication: Oesophageal adenocarcinoma
     Route: 042
     Dates: end: 20220517
  2. LANTUS [Concomitant]
     Active Substance: INSULIN GLARGINE
     Indication: Product used for unknown indication
     Dosage: 36 MG/J
     Route: 065
     Dates: start: 20190829

REACTIONS (3)
  - Cerebrovascular accident [Fatal]
  - Haemorrhage [Fatal]
  - Sepsis [Fatal]
